FAERS Safety Report 12434124 (Version 2)
Quarter: 2019Q2

REPORT INFORMATION
  Report Type: Spontaneous
  Country: SI (occurrence: SI)
  Receive Date: 20160603
  Receipt Date: 20190620
  Transmission Date: 20190711
  Serious: Yes (Hospitalization, Other)
  Sender: FDA-Public Use
  Company Number: SI-INDIVIOR LIMITED-INDV-091103-2016

PATIENT
  Age: 24 Year
  Sex: Male

DRUGS (17)
  1. BUPRENORPHINE. [Suspect]
     Active Substance: BUPRENORPHINE
     Dosage: UNK; DOSE INCREASED
     Route: 065
  2. DIAZEPAM. [Concomitant]
     Active Substance: DIAZEPAM
     Dosage: 3X5MG, UNK
     Route: 065
  3. RISPERIDONE. [Concomitant]
     Active Substance: RISPERIDONE
     Indication: PRODUCT USED FOR UNKNOWN INDICATION
     Dosage: UPTO 6MG, UNK
     Route: 065
  4. DIAZEPAM. [Concomitant]
     Active Substance: DIAZEPAM
     Dosage: 2X5 MG PLUS UP TO 2X5 MG TO BE TAKEN ADDITIONALLY WHEN ABSTINENCE SYMPTOMS BECAME PRESENT
     Route: 065
  5. BUPRENORPHINE. [Suspect]
     Active Substance: BUPRENORPHINE
     Dosage: 2 MG DAILY
     Route: 065
  6. PENTEDRONE [Suspect]
     Active Substance: PENTEDRONE
     Indication: PRODUCT USED FOR UNKNOWN INDICATION
     Dosage: 2G, UNK
     Route: 045
  7. QUETIAPINE. [Concomitant]
     Active Substance: QUETIAPINE
     Indication: DRUG DEPENDENCE
     Dosage: UP TO 300 MG PER DAY
     Route: 065
  8. QUETIAPINE. [Concomitant]
     Active Substance: QUETIAPINE
     Dosage: 50MG, UNK
     Route: 065
  9. BENZODIAZEPINE DERIVATIVES [Suspect]
     Active Substance: BENZODIAZEPINE
     Indication: PRODUCT USED FOR UNKNOWN INDICATION
     Dosage: UNK
     Route: 065
  10. DIAZEPAM. [Concomitant]
     Active Substance: DIAZEPAM
     Indication: PRODUCT USED FOR UNKNOWN INDICATION
     Dosage: UP TO 30 MG PER DAY
     Route: 065
  11. BUPRENORPHINE. [Suspect]
     Active Substance: BUPRENORPHINE
     Dosage: 2MG (2ND AND 3RD DAY 0.4 MG), HAD IMMEDIATELY BEEN REDUCED
     Route: 065
  12. ZIPRASIDONE. [Concomitant]
     Active Substance: ZIPRASIDONE
     Indication: PRODUCT USED FOR UNKNOWN INDICATION
     Dosage: UPTO 120MG, UNK
     Route: 065
  13. OPIOIDS [Suspect]
     Active Substance: UNSPECIFIED INGREDIENT
     Indication: PRODUCT USED FOR UNKNOWN INDICATION
     Dosage: UNK
     Route: 065
  14. CANNABIS [Suspect]
     Active Substance: CANNABIS SATIVA SUBSP. INDICA TOP
     Indication: PRODUCT USED FOR UNKNOWN INDICATION
     Dosage: UNK
     Route: 065
  15. BUPRENORPHINE. [Suspect]
     Active Substance: BUPRENORPHINE
     Indication: DRUG DEPENDENCE
     Dosage: 8MG DAILY
     Route: 065
  16. QUETIAPINE. [Concomitant]
     Active Substance: QUETIAPINE
     Dosage: 300 MG UNK
     Route: 065
  17. LORAZEPAM. [Concomitant]
     Active Substance: LORAZEPAM
     Indication: PRODUCT USED FOR UNKNOWN INDICATION
     Dosage: UPTO 2MG, UNK
     Route: 065

REACTIONS (11)
  - Drug abuse [Unknown]
  - Abnormal behaviour [Recovered/Resolved]
  - Hallucination [Recovered/Resolved]
  - Mental disorder [Unknown]
  - Anxiety [Unknown]
  - Fear [Recovered/Resolved]
  - Logorrhoea [Recovered/Resolved]
  - Persecutory delusion [Recovered/Resolved]
  - Impaired reasoning [Recovered/Resolved]
  - Drug withdrawal syndrome [Unknown]
  - Drug dependence [Unknown]
